FAERS Safety Report 13956909 (Version 1)
Quarter: 2017Q3

REPORT INFORMATION
  Report Type: Spontaneous
  Country: FR (occurrence: FR)
  Receive Date: 20170911
  Receipt Date: 20170911
  Transmission Date: 20171128
  Serious: Yes (Other)
  Sender: FDA-Public Use
  Company Number: FR-BAYER-2017-171165

PATIENT
  Age: 28 Year
  Sex: Female

DRUGS (1)
  1. MIRENA [Suspect]
     Active Substance: LEVONORGESTREL
     Indication: CONTRACEPTION
     Dosage: 20 MCG/24HR, CONT
     Route: 015
     Dates: start: 20151103, end: 20170529

REACTIONS (9)
  - Ovarian cyst [Recovered/Resolved]
  - Pain in extremity [Recovered/Resolved]
  - Cystitis [Recovered/Resolved]
  - Loss of libido [Recovered/Resolved]
  - Panic attack [Recovered/Resolved]
  - Anxiety [Recovered/Resolved]
  - Fatigue [Recovered/Resolved]
  - Breast swelling [Recovered/Resolved]
  - Breast pain [Recovered/Resolved]

NARRATIVE: CASE EVENT DATE: 20161003
